FAERS Safety Report 10920495 (Version 2)
Quarter: 2015Q1

REPORT INFORMATION
  Report Type: Spontaneous
  Country: FR (occurrence: FR)
  Receive Date: 20150317
  Receipt Date: 20150325
  Transmission Date: 20150721
  Serious: Yes (Other)
  Sender: FDA-Public Use
  Company Number: FR-BEH-2015049576

PATIENT
  Age: 71 Year
  Sex: Male

DRUGS (1)
  1. PRIVIGEN [Suspect]
     Active Substance: HUMAN IMMUNOGLOBULIN G
     Indication: VASCULITIS NECROTISING
     Dosage: 100 MG/ML DILUTED IN 5% GLUCOSE
     Route: 042
     Dates: start: 20150302, end: 20150305

REACTIONS (4)
  - Enterococcal infection [Recovering/Resolving]
  - Hyperthermia [Recovering/Resolving]
  - Hypertension [Recovering/Resolving]
  - Skin discolouration [Recovering/Resolving]

NARRATIVE: CASE EVENT DATE: 20150305
